FAERS Safety Report 8962866 (Version 2)
Quarter: 2017Q2

REPORT INFORMATION
  Report Type: Spontaneous
  Country: CA (occurrence: CA)
  Receive Date: 20121214
  Receipt Date: 20170614
  Transmission Date: 20170830
  Serious: Yes (Hospitalization, Other)
  Sender: FDA-Public Use
  Company Number: CA-PFIZER INC-2012310406

PATIENT
  Age: 10 Year
  Sex: Female
  Weight: 50 kg

DRUGS (5)
  1. SALAZOPYRIN [Suspect]
     Active Substance: SULFASALAZINE
     Indication: ARTHRALGIA
  2. SALAZOPYRIN [Suspect]
     Active Substance: SULFASALAZINE
     Indication: CROHN^S DISEASE
     Dosage: UNK
     Route: 048
     Dates: start: 20110109, end: 20110127
  3. FERROUS SULFATE. [Concomitant]
     Active Substance: FERROUS SULFATE
     Dosage: 1 DF, 1X/DAY
     Route: 048
  4. SALOFALK [Concomitant]
     Active Substance: MESALAMINE
     Dosage: 1000 MG, 1X/DAY
     Route: 048
  5. NAPROXEN. [Concomitant]
     Active Substance: NAPROXEN
     Dosage: 375 MG, 2X/DAY
     Route: 048

REACTIONS (3)
  - Stevens-Johnson syndrome [Recovered/Resolved]
  - Hypoalbuminaemia [Recovered/Resolved]
  - Anaemia [Recovered/Resolved]

NARRATIVE: CASE EVENT DATE: 20110121
